FAERS Safety Report 17251891 (Version 2)
Quarter: 2020Q1

REPORT INFORMATION
  Report Type: Spontaneous
  Country: FR (occurrence: FR)
  Receive Date: 20200109
  Receipt Date: 20200121
  Transmission Date: 20200409
  Serious: Yes (Death, Other)
  Sender: FDA-Public Use
  Company Number: FR-STRIDES ARCOLAB LIMITED-2020SP000052

PATIENT
  Age: 41 Year
  Sex: Male

DRUGS (9)
  1. ALCOHOL. [Suspect]
     Active Substance: ALCOHOL
     Indication: PRODUCT USED FOR UNKNOWN INDICATION
     Dosage: UNK
     Route: 065
  2. METHAMPHETAMINE                    /00069101/ [Suspect]
     Active Substance: METHAMPHETAMINE
     Indication: PRODUCT USED FOR UNKNOWN INDICATION
     Dosage: UNK; PRESUMABLY INJECTED, PLANTED UNDER HIS TONGUE
     Route: 065
  3. ZOLPIDEM [Suspect]
     Active Substance: ZOLPIDEM TARTRATE
     Indication: PRODUCT USED FOR UNKNOWN INDICATION
     Dosage: UNK; PRESUMABLY INJECTED, PLANTED UNDER HIS TONGUE
     Route: 065
  4. SKENAN [Suspect]
     Active Substance: MORPHINE SULFATE
     Indication: PRODUCT USED FOR UNKNOWN INDICATION
     Dosage: UNK; PRESUMABLY INJECTED, PLANTED UNDER HIS TONGUE
     Route: 065
  5. ALPRAZOLAM. [Suspect]
     Active Substance: ALPRAZOLAM
     Indication: PRODUCT USED FOR UNKNOWN INDICATION
     Dosage: UNK; PRESUMABLY INJECTED, PLANTED UNDER HIS TONGUE
     Route: 065
  6. KETAMINE [Suspect]
     Active Substance: KETAMINE
     Indication: PRODUCT USED FOR UNKNOWN INDICATION
     Dosage: UNK; PRESUMABLY INJECTED, PLANTED UNDER HIS TONGUE
     Route: 065
  7. AMPHETAMINE [Suspect]
     Active Substance: AMPHETAMINE
     Indication: PRODUCT USED FOR UNKNOWN INDICATION
     Dosage: UNK; PRESUMABLY INJECTED, PLANTED UNDER HIS TONGUE
     Route: 065
  8. DEXTROMETHORPHAN [Suspect]
     Active Substance: DEXTROMETHORPHAN
     Indication: PRODUCT USED FOR UNKNOWN INDICATION
     Dosage: UNK; PRESUMABLY INJECTED, PLANTED UNDER HIS TONGUE
     Route: 065
  9. METHADONE [Suspect]
     Active Substance: METHADONE HYDROCHLORIDE
     Indication: PRODUCT USED FOR UNKNOWN INDICATION
     Dosage: 60 MG/DAY PRESUMABLY INJECTED, PLANTED UNDER HIS TONGUE
     Route: 065

REACTIONS (2)
  - Sudden death [Fatal]
  - Drug abuse [Unknown]

NARRATIVE: CASE EVENT DATE: 201712
